FAERS Safety Report 6254022-9 (Version None)
Quarter: 2009Q3

REPORT INFORMATION
  Report Type: 
  Country: None (occurrence: None)
  Receive Date: 20090702
  Receipt Date: 20090623
  Transmission Date: 20100115
  Serious: Yes (Other)
  Sender: FDA-Public Use
  Company Number: GB-ROCHE-639969

PATIENT
  Sex: Female
  Weight: 106.1 kg

DRUGS (5)
  1. ORLISTAT [Suspect]
     Indication: OBESITY
     Route: 048
     Dates: start: 20081020
  2. PERGALEN [Concomitant]
     Indication: PAIN
     Dosage: REPORTED AS PERGABLIN 2 TAKEN DAILY
     Route: 048
  3. FLUOXETINE HCL [Concomitant]
     Indication: DEPRESSION
     Dosage: REPORTED AS ONE TAKEN DAILY.
     Route: 048
  4. GLUCOSAMINE [Concomitant]
     Indication: DRUG USE FOR UNKNOWN INDICATION
     Route: 048
  5. NAFTIDROFURYL [Concomitant]
     Dosage: REPORTED AS NAFTIDROFURL THREE TAKEN DAILY.
     Route: 048

REACTIONS (1)
  - HYPOTHYROIDISM [None]
